FAERS Safety Report 10867013 (Version 1)
Quarter: 2015Q1

REPORT INFORMATION
  Report Type: Spontaneous
  Country: US (occurrence: US)
  Receive Date: 20150225
  Receipt Date: 20150225
  Transmission Date: 20150721
  Serious: No
  Sender: FDA-Public Use
  Company Number: US-PFIZER INC-2015066375

PATIENT
  Age: 72 Year
  Sex: Male
  Weight: 117 kg

DRUGS (3)
  1. TIKOSYN [Suspect]
     Active Substance: DOFETILIDE
     Indication: ATRIAL FLUTTER
     Dosage: 250 MCG, 2X/DAY
     Route: 048
  2. XARELTO [Concomitant]
     Active Substance: RIVAROXABAN
     Indication: ANTICOAGULANT THERAPY
  3. DRONEDARONE [Suspect]
     Active Substance: DRONEDARONE

REACTIONS (13)
  - Anaemia [Not Recovered/Not Resolved]
  - Tremor [Unknown]
  - Insomnia [Unknown]
  - Influenza like illness [Not Recovered/Not Resolved]
  - Erythema [Unknown]
  - Hyperhidrosis [Not Recovered/Not Resolved]
  - Chills [Unknown]
  - Hot flush [Unknown]
  - Influenza [Recovering/Resolving]
  - Thirst [Not Recovered/Not Resolved]
  - Diarrhoea [Not Recovered/Not Resolved]
  - Decreased appetite [Not Recovered/Not Resolved]
  - Weight decreased [Unknown]

NARRATIVE: CASE EVENT DATE: 201412
